FAERS Safety Report 20818413 (Version 2)
Quarter: 2022Q2

REPORT INFORMATION
  Report Type: Spontaneous
  Country: DE (occurrence: DE)
  Receive Date: 20220512
  Receipt Date: 20220527
  Transmission Date: 20220721
  Serious: Yes (Hospitalization, Other)
  Sender: FDA-Public Use
  Company Number: DE-Accord-262849

PATIENT
  Age: 41 Year
  Sex: Female

DRUGS (6)
  1. CLOZAPINE [Interacting]
     Active Substance: CLOZAPINE
     Indication: Schizophrenia
     Dosage: VARIATION OF DOSES (100 TO 375 MG/DIE)
  2. ARIPIPRAZOLE [Suspect]
     Active Substance: ARIPIPRAZOLE
     Indication: Schizophrenia
  3. SERTRALINE [Suspect]
     Active Substance: SERTRALINE HYDROCHLORIDE
     Indication: Schizophrenia
  4. AMISULPRIDE [Suspect]
     Active Substance: AMISULPRIDE
     Indication: Schizophrenia
  5. FLUPENTIXOL [Suspect]
     Active Substance: FLUPENTIXOL
     Indication: Schizophrenia
  6. CARIPRAZINE [Interacting]
     Active Substance: CARIPRAZINE
     Indication: Schizophrenia
     Dosage: 3 MG/DAY, 6 MG/DAY

REACTIONS (7)
  - Pleurothotonus [Recovered/Resolved]
  - Drug interaction [Unknown]
  - Adverse drug reaction [Unknown]
  - Drug ineffective [Unknown]
  - Psychotic symptom [Recovered/Resolved]
  - Condition aggravated [Recovered/Resolved]
  - Electroencephalogram abnormal [Unknown]
